FAERS Safety Report 13888399 (Version 1)
Quarter: 2017Q3

REPORT INFORMATION
  Report Type: Spontaneous
  Country: US (occurrence: US)
  Receive Date: 20170822
  Receipt Date: 20170822
  Transmission Date: 20171127
  Serious: No
  Sender: FDA-Public Use
  Company Number: US-LUPIN PHARMACEUTICALS INC.-2017-04089

PATIENT
  Sex: Female
  Weight: 78.46 kg

DRUGS (1)
  1. NORGESTIMATE AND ETHINYL ESTRADIOL TABLETS USP 0.18 MG/0.035 MG [Suspect]
     Active Substance: ETHINYL ESTRADIOL\NORGESTIMATE
     Indication: CONTRACEPTION
     Dosage: 0.180,0.125.0.25 MG, QD
     Route: 048
     Dates: start: 201604

REACTIONS (2)
  - Gastrointestinal disorder [Not Recovered/Not Resolved]
  - Vaginal discharge [Not Recovered/Not Resolved]
